FAERS Safety Report 9127808 (Version 1)
Quarter: 2013Q1

REPORT INFORMATION
  Report Type: Spontaneous
  Country: JP (occurrence: JP)
  Receive Date: 20130125
  Receipt Date: 20130125
  Transmission Date: 20140127
  Serious: Yes (Hospitalization)
  Sender: FDA-Public Use
  Company Number: JP-B.I. PHARMACEUTICALS,INC./RIDGEFIELD-2013-BI-01591NB

PATIENT
  Age: 73 Year
  Sex: Male

DRUGS (4)
  1. PRAZAXA [Suspect]
     Dosage: 220 MG
     Route: 048
     Dates: start: 201205
  2. ARTIST [Concomitant]
     Dosage: NR
     Route: 065
  3. NAUZELIN [Concomitant]
     Dosage: NR
     Route: 065
  4. MAGNESIUM OXIDE [Concomitant]
     Dosage: NR
     Route: 065

REACTIONS (1)
  - Activated partial thromboplastin time prolonged [Not Recovered/Not Resolved]
